FAERS Safety Report 10681795 (Version 1)
Quarter: 2014Q4

REPORT INFORMATION
  Report Type: Spontaneous
  Country: JP (occurrence: JP)
  Receive Date: 20141230
  Receipt Date: 20141230
  Transmission Date: 20150529
  Serious: Yes (Other)
  Sender: FDA-Public Use
  Company Number: JP-TEVA-531407ISR

PATIENT
  Age: 76 Year
  Sex: Female

DRUGS (17)
  1. 5-FU (FLUOROURACIL) [Concomitant]
     Active Substance: FLUOROURACIL
     Dosage: 622 MILLIGRAM DAILY;
     Route: 042
     Dates: start: 20140703, end: 20140703
  2. 5-FU (FLUOROURACIL) [Concomitant]
     Active Substance: FLUOROURACIL
     Dosage: 603 MILLIGRAM DAILY;
     Route: 042
     Dates: start: 20140724, end: 20140814
  3. FILGRASTIM BS INJ. ^NK^ [Suspect]
     Active Substance: FILGRASTIM
     Indication: NEUTROPENIA
     Dosage: 75 MICROGRAM/M2 DAILY;
     Route: 058
     Dates: start: 20140121, end: 20140123
  4. DEXART [Concomitant]
     Active Substance: DEXAMETHASONE SODIUM PHOSPHATE
     Indication: BREAST CANCER
     Dosage: 6.6 MILLIGRAM DAILY;
     Route: 042
     Dates: start: 20140612, end: 20140814
  5. DECADRON [Concomitant]
     Active Substance: DEXAMETHASONE
     Indication: BREAST CANCER
     Dosage: 4 MILLIGRAM DAILY;
     Route: 048
     Dates: start: 20140612, end: 20140816
  6. FILGRASTIM BS INJ. ^NK^ [Suspect]
     Active Substance: FILGRASTIM
     Dosage: 75 MICROGRAM/M2 DAILY;
     Route: 058
     Dates: start: 20140823, end: 20140825
  7. EPIRUBICIN HYDROCHLORIDE. [Concomitant]
     Active Substance: EPIRUBICIN HYDROCHLORIDE
     Dosage: 125 MILLIGRAM DAILY;
     Route: 042
     Dates: start: 20140703, end: 20140703
  8. EPIRUBICIN HYDROCHLORIDE. [Concomitant]
     Active Substance: EPIRUBICIN HYDROCHLORIDE
     Dosage: 120 MILLIGRAM DAILY;
     Route: 042
     Dates: start: 20140724, end: 20140814
  9. 5-FU (FLUOROURACIL) [Concomitant]
     Active Substance: FLUOROURACIL
     Indication: BREAST CANCER
     Dosage: 720 MILLIGRAM DAILY;
     Route: 042
     Dates: start: 20140612, end: 20140612
  10. FILGRASTIM BS INJ. ^NK^ [Suspect]
     Active Substance: FILGRASTIM
     Dosage: 75 MICROGRAM/M2 DAILY;
     Route: 058
     Dates: start: 20140807, end: 20140808
  11. ENDOXAN [Concomitant]
     Active Substance: CYCLOPHOSPHAMIDE
     Indication: BREAST CANCER
     Dosage: 720 MILLIGRAM DAILY;
     Route: 042
     Dates: start: 20140612, end: 20140612
  12. ENDOXAN [Concomitant]
     Active Substance: CYCLOPHOSPHAMIDE
     Dosage: 603 MILLIGRAM DAILY;
     Route: 042
     Dates: start: 20140724, end: 20140814
  13. DEXART [Concomitant]
     Active Substance: DEXAMETHASONE SODIUM PHOSPHATE
     Dosage: 1.65 MILLIGRAM DAILY;
     Route: 042
     Dates: start: 20140612, end: 20140814
  14. FILGRASTIM BS INJ. ^NK^ [Suspect]
     Active Substance: FILGRASTIM
     Dosage: 75 MICROGRAM/M2 DAILY;
     Route: 058
     Dates: start: 20140715, end: 20140715
  15. ENDOXAN [Concomitant]
     Active Substance: CYCLOPHOSPHAMIDE
     Dosage: 622 MILLIGRAM DAILY;
     Route: 042
     Dates: start: 20140703, end: 20140703
  16. EPIRUBICIN HYDROCHLORIDE. [Concomitant]
     Active Substance: EPIRUBICIN HYDROCHLORIDE
     Indication: BREAST CANCER
     Dosage: 144 MILLIGRAM DAILY;
     Route: 042
     Dates: start: 20140612, end: 20140612
  17. DECADRON [Concomitant]
     Active Substance: DEXAMETHASONE
     Dosage: 8 MILLIGRAM DAILY;
     Route: 048
     Dates: start: 20140706, end: 20140818

REACTIONS (4)
  - Weight decreased [Recovered/Resolved]
  - Decreased appetite [Recovered/Resolved]
  - Interstitial lung disease [Recovered/Resolved]
  - Pyrexia [Recovered/Resolved]

NARRATIVE: CASE EVENT DATE: 20140714
